FAERS Safety Report 5743998-1 (Version None)
Quarter: 2008Q2

REPORT INFORMATION
  Report Type: 
  Country: None (occurrence: None)
  Receive Date: 20080516
  Receipt Date: 20080516
  Transmission Date: 20081010
  Serious: No
  Sender: FDA-Public Use
  Company Number: None

PATIENT
  Age: 41 Year
  Sex: Female
  Weight: 58.9676 kg

DRUGS (1)
  1. CREST PROHEALTH NIGHT RINSE PROCTOR AND GAMBLE [Suspect]
     Indication: TOOTH DISORDER
     Dosage: NIGHTLY DENTAL
     Route: 004
     Dates: start: 20080503, end: 20080514

REACTIONS (2)
  - HYPOGEUSIA [None]
  - TOOTH DISCOLOURATION [None]
